FAERS Safety Report 19314208 (Version 3)
Quarter: 2022Q1

REPORT INFORMATION
  Report Type: Report from Study
  Country: US (occurrence: US)
  Receive Date: 20210527
  Receipt Date: 20220331
  Transmission Date: 20220423
  Serious: Yes (Hospitalization)
  Sender: FDA-Public Use
  Company Number: US-TAKEDA-2021TUS032229

PATIENT
  Sex: Female
  Weight: 76.19 kg

DRUGS (30)
  1. HUMAN IMMUNOGLOBULIN G [Suspect]
     Active Substance: HUMAN IMMUNOGLOBULIN G
     Indication: Immunodeficiency common variable
     Dosage: 30 GRAM, Q3WEEKS
     Route: 042
     Dates: start: 20210322
  2. HUMAN IMMUNOGLOBULIN G [Suspect]
     Active Substance: HUMAN IMMUNOGLOBULIN G
     Dosage: 30 GRAM, Q3WEEKS
     Route: 065
     Dates: start: 20210322
  3. ACETAMINOPHEN [Concomitant]
     Active Substance: ACETAMINOPHEN
     Route: 065
  4. DIPHENHYDRAMINE [Concomitant]
     Active Substance: DIPHENHYDRAMINE
     Route: 065
  5. IBUPROFEN [Concomitant]
     Active Substance: IBUPROFEN
     Route: 065
  6. LIDOCAINE [Concomitant]
     Active Substance: LIDOCAINE
     Route: 065
  7. SODIUM CHLORIDE [Concomitant]
     Active Substance: SODIUM CHLORIDE
     Route: 065
  8. EPINEPHRINE [Concomitant]
     Active Substance: EPINEPHRINE
     Route: 065
  9. SODIUM CHLORIDE [Concomitant]
     Active Substance: SODIUM CHLORIDE
     Route: 065
  10. METFORMIN [Concomitant]
     Active Substance: METFORMIN HYDROCHLORIDE
     Route: 065
  11. AMBIEN [Concomitant]
     Active Substance: ZOLPIDEM TARTRATE
     Route: 065
  12. PREMARIN [Concomitant]
     Active Substance: ESTROGENS, CONJUGATED
     Route: 065
  13. ATORVASTATIN [Concomitant]
     Active Substance: ATORVASTATIN
     Route: 065
  14. FLUOXETINE [Concomitant]
     Active Substance: FLUOXETINE HYDROCHLORIDE
     Route: 065
  15. ASPIRIN [Concomitant]
     Active Substance: ASPIRIN
     Route: 065
  16. COLESTIPOL [Concomitant]
     Active Substance: COLESTIPOL
     Route: 065
  17. DICYCLOMINE CO [Concomitant]
     Route: 065
  18. FARXIGA [Concomitant]
     Active Substance: DAPAGLIFLOZIN PROPANEDIOL
     Route: 065
  19. AMITRIPTYLINE [Concomitant]
     Active Substance: AMITRIPTYLINE
     Route: 065
  20. PROCHLORPERAZINE [Concomitant]
     Active Substance: PROCHLORPERAZINE
     Route: 065
  21. PANTOPRAZOLE [Concomitant]
     Active Substance: PANTOPRAZOLE
     Route: 065
  22. ALPRAZOLAM [Concomitant]
     Active Substance: ALPRAZOLAM
     Route: 065
  23. LOSARTAN [Concomitant]
     Active Substance: LOSARTAN
     Route: 065
  24. POTASSIUM [Concomitant]
     Active Substance: POTASSIUM
     Route: 065
  25. OXYGEN [Concomitant]
     Active Substance: OXYGEN
     Route: 065
  26. BUDESONIDE\FORMOTEROL [Concomitant]
     Active Substance: BUDESONIDE\FORMOTEROL
  27. HYDROCODONE BITARTRATE AND ACETAMINOPHEN [Concomitant]
     Active Substance: ACETAMINOPHEN\HYDROCODONE BITARTRATE
  28. XANAX [Concomitant]
     Active Substance: ALPRAZOLAM
  29. MECLIZINE HYDROCHLORIDE [Concomitant]
     Active Substance: MECLIZINE HYDROCHLORIDE
  30. VITAMIN C [Concomitant]
     Active Substance: ASCORBIC ACID

REACTIONS (5)
  - Biopsy lung [Unknown]
  - COVID-19 [Unknown]
  - Weight decreased [Unknown]
  - Therapy interrupted [Unknown]
  - Insurance issue [Unknown]
